FAERS Safety Report 5243208-8 (Version None)
Quarter: 2007Q2

REPORT INFORMATION
  Report Type: 
  Country: None (occurrence: None)
  Receive Date: 20070215
  Receipt Date: 20070202
  Transmission Date: 20071010
  Serious: Yes (Hospitalization)
  Sender: FDA-Public Use
  Company Number: 2007US000257

PATIENT
  Age: 10 Year
  Sex: Female
  Weight: 21 kg

DRUGS (15)
  1. AMBISOME [Suspect]
     Indication: OESOPHAGEAL CANDIDIASIS
  2. VIREAD [Suspect]
     Indication: HIV INFECTION
  3. DARUNAVIR [Suspect]
     Indication: HIV INFECTION
     Dosage: 375 MG, BID, ORAL
     Route: 048
     Dates: start: 20061116
  4. ETRAVIRINE [Suspect]
     Indication: DRUG USE FOR UNKNOWN INDICATION
     Dosage: 100 MG, BID, ORAL
     Route: 048
     Dates: start: 20061116
  5. RITONAVIR [Suspect]
     Indication: HIV INFECTION
     Dates: start: 20061116
  6. AMIKACIN [Suspect]
     Indication: MYCOBACTERIUM AVIUM COMPLEX INFECTION
  7. LAMIVUDINE [Concomitant]
  8. PREDNISOLONE [Concomitant]
  9. CLOBAZAM [Concomitant]
  10. CLARITHROMYCIN [Concomitant]
  11. RIFABUTIN (RIFABUTIN) [Concomitant]
  12. ETHAMBUTOL HYDROCHLORIDE [Concomitant]
  13. ATOVAQUONE [Concomitant]
  14. IMMUNOGLOBULIN (IMMUNOGLOBULIN) [Concomitant]
  15. FLUCONAZOLE [Concomitant]

REACTIONS (13)
  - ABDOMINAL DISTENSION [None]
  - ABDOMINAL PAIN [None]
  - ANAEMIA [None]
  - BLOOD ALBUMIN DECREASED [None]
  - DIARRHOEA [None]
  - HYPERKALAEMIA [None]
  - HYPERTENSION [None]
  - HYPOKALAEMIA [None]
  - IMMUNE RECONSTITUTION SYNDROME [None]
  - MALAISE [None]
  - RENAL FAILURE [None]
  - TACHYCARDIA [None]
  - WHITE BLOOD CELL COUNT DECREASED [None]
